FAERS Safety Report 9361930 (Version 1)
Quarter: 2013Q2

REPORT INFORMATION
  Report Type: Spontaneous
  Country: GB (occurrence: US)
  Receive Date: 20130621
  Receipt Date: 20130621
  Transmission Date: 20140414
  Serious: Yes (Hospitalization, Other)
  Sender: FDA-Public Use
  Company Number: US-TEVA-413645USA

PATIENT
  Age: 21 Year
  Sex: Male

DRUGS (1)
  1. PROPRANOLOL [Suspect]
     Dosage: 1.7G
     Route: 048

REACTIONS (4)
  - Overdose [Recovered/Resolved]
  - Respiratory arrest [Recovered/Resolved]
  - Grand mal convulsion [Recovered/Resolved]
  - Tachycardia [Recovered/Resolved]
